FAERS Safety Report 5011651-8 (Version None)
Quarter: 2006Q2

REPORT INFORMATION
  Report Type: 
  Country: None (occurrence: None)
  Receive Date: 20060526
  Receipt Date: 20060518
  Transmission Date: 20061013
  Serious: Yes (Hospitalization, Other)
  Sender: FDA-Public Use
  Company Number: 2006PK01125

PATIENT
  Age: 23734 Day
  Sex: Female
  Weight: 56 kg

DRUGS (3)
  1. ARIMIDEX [Suspect]
     Indication: BREAST CANCER
     Route: 048
     Dates: start: 20051115
  2. NOLVADEX [Suspect]
     Indication: BREAST CANCER
     Route: 048
     Dates: start: 20010101, end: 20051101
  3. THYREX [Concomitant]
     Indication: GOITRE
     Route: 048

REACTIONS (1)
  - ENDOMETRIAL DISORDER [None]
